FAERS Safety Report 8999398 (Version 1)
Quarter: 2013Q1

REPORT INFORMATION
  Report Type: Spontaneous
  Country: US (occurrence: US)
  Receive Date: 20130103
  Receipt Date: 20130103
  Transmission Date: 20140127
  Serious: Yes (Hospitalization)
  Sender: FDA-Public Use
  Company Number: US-CELGENEUS-163-21880-12123114

PATIENT
  Sex: Female

DRUGS (1)
  1. REVLIMID [Suspect]
     Indication: PLASMA CELL MYELOMA
     Dosage: 10 MILLIGRAM
     Route: 048
     Dates: start: 20121130

REACTIONS (3)
  - Gallbladder disorder [Not Recovered/Not Resolved]
  - Constipation [Not Recovered/Not Resolved]
  - Abdominal pain [Not Recovered/Not Resolved]
